FAERS Safety Report 4462869-4 (Version None)
Quarter: 2004Q3

REPORT INFORMATION
  Report Type: 
  Country: None (occurrence: None)
  Receive Date: 20040930
  Receipt Date: 20040624
  Transmission Date: 20050211
  Serious: Yes (Death, Hospitalization)
  Sender: FDA-Public Use
  Company Number: 200414892US

PATIENT
  Sex: Male
  Weight: 77 kg

DRUGS (2)
  1. DOCETAXEL [Suspect]
     Indication: NON-SMALL CELL LUNG CANCER
     Route: 041
     Dates: start: 20040426, end: 20040604
  2. DN-101 [Suspect]
     Indication: NON-SMALL CELL LUNG CANCER
     Dosage: DOSE: 12 CAPS
     Route: 048
     Dates: start: 20040425, end: 20040604

REACTIONS (7)
  - ACUTE RESPIRATORY DISTRESS SYNDROME [None]
  - BLOOD GLUCOSE INCREASED [None]
  - HAEMATOCRIT DECREASED [None]
  - HAEMOGLOBIN DECREASED [None]
  - HYPOXIA [None]
  - LUNG INFILTRATION [None]
  - WHITE BLOOD CELL COUNT INCREASED [None]
